FAERS Safety Report 14873646 (Version 1)
Quarter: 2018Q2

REPORT INFORMATION
  Report Type: Spontaneous
  Country: US (occurrence: US)
  Receive Date: 20180424
  Receipt Date: 20180424
  Transmission Date: 20180711
  Serious: Yes (Hospitalization)
  Sender: FDA-Public Use
  Company Number: None

PATIENT
  Sex: Male

DRUGS (6)
  1. CREON [Concomitant]
     Active Substance: PANCRELIPASE AMYLASE\PANCRELIPASE LIPASE\PANCRELIPASE PROTEASE
  2. CAYSTON [Concomitant]
     Active Substance: AZTREONAM
  3. ALBUTEROL. [Concomitant]
     Active Substance: ALBUTEROL
  4. TOBI [Concomitant]
     Active Substance: TOBRAMYCIN
  5. AMIKACIN. [Concomitant]
     Active Substance: AMIKACIN
  6. PULMOZYME [Suspect]
     Active Substance: DORNASE ALFA
     Indication: CYSTIC FIBROSIS
     Dosage: ?          OTHER ROUTE:NEBULIZER?
     Dates: start: 20151001

REACTIONS (1)
  - Respiratory disorder [None]
